FAERS Safety Report 10090773 (Version 3)
Quarter: 2015Q3

REPORT INFORMATION
  Report Type: Spontaneous
  Country: US (occurrence: US)
  Receive Date: 20140421
  Receipt Date: 20150812
  Transmission Date: 20151125
  Serious: No
  Sender: FDA-Public Use
  Company Number: US-GILEAD-2012-0059343

PATIENT
  Age: 71 Year
  Sex: Male

DRUGS (3)
  1. ALDACTONE [Concomitant]
     Active Substance: SPIRONOLACTONE
  2. LISINOPRIL. [Suspect]
     Active Substance: LISINOPRIL
  3. LETAIRIS [Suspect]
     Active Substance: AMBRISENTAN
     Indication: PRODUCT USED FOR UNKNOWN INDICATION
     Dosage: 5 MG, UNK
     Route: 048
     Dates: start: 20120615

REACTIONS (3)
  - Dyspnoea [Unknown]
  - Hypotension [Unknown]
  - Blood potassium increased [Unknown]
